FAERS Safety Report 19521723 (Version 1)
Quarter: 2021Q3

REPORT INFORMATION
  Report Type: Spontaneous
  Country: DE (occurrence: DE)
  Receive Date: 20210712
  Receipt Date: 20210712
  Transmission Date: 20211014
  Serious: Yes (Hospitalization)
  Sender: FDA-Public Use
  Company Number: DE-PFIZER INC-2021794095

PATIENT
  Age: 39 Year
  Sex: Female
  Weight: 92 kg

DRUGS (6)
  1. FUNGIZID RATIOPHARM [Concomitant]
     Dosage: UNK
     Route: 067
  2. LEVOTHYROXINE SODIUM. [Concomitant]
     Active Substance: LEVOTHYROXINE SODIUM
     Dosage: 25 UG, 1X/DAY
     Route: 048
  3. JODID [Concomitant]
     Active Substance: IODINE
     Dosage: 200 UG, 1X/DAY, TABLET
     Route: 048
  4. EPIRUBICIN HCL [Suspect]
     Active Substance: EPIRUBICIN HYDROCHLORIDE
     Dosage: UNK
     Route: 042
  5. PANTOPRAZOL [PANTOPRAZOLE] [Concomitant]
     Active Substance: PANTOPRAZOLE
     Dosage: 40 MG
     Route: 048
  6. CYCLOPHOSPHAMID [Suspect]
     Active Substance: CYCLOPHOSPHAMIDE
     Dosage: UNK
     Route: 042

REACTIONS (2)
  - Dyspnoea [Recovering/Resolving]
  - Musculoskeletal pain [Recovering/Resolving]
